FAERS Safety Report 17281164 (Version 4)
Quarter: 2020Q1

REPORT INFORMATION
  Report Type: Report from Study
  Country: US (occurrence: US)
  Receive Date: 20200117
  Receipt Date: 20200309
  Transmission Date: 20200409
  Serious: Yes (Hospitalization, Other)
  Sender: FDA-Public Use
  Company Number: US-SHIRE-US202001302

PATIENT
  Age: 72 Year
  Sex: Male
  Weight: 83 kg

DRUGS (3)
  1. TEDUGLUTIDE [Suspect]
     Active Substance: TEDUGLUTIDE
     Indication: PRODUCT USED FOR UNKNOWN INDICATION
     Dosage: 0.413 MILLILITER, 1X/DAY:QD
     Route: 065
     Dates: start: 20190403
  2. TEDUGLUTIDE [Suspect]
     Active Substance: TEDUGLUTIDE
     Dosage: 0.3 MILLILITER, 1X/DAY:QD
     Route: 058
  3. TEDUGLUTIDE [Suspect]
     Active Substance: TEDUGLUTIDE
     Dosage: 0.41 MILLILITER, 1X/DAY:QD
     Route: 065

REACTIONS (5)
  - Ascites [Unknown]
  - Nausea [Unknown]
  - Pulmonary embolism [Unknown]
  - Gastrointestinal haemorrhage [Unknown]
  - Weight increased [Unknown]

NARRATIVE: CASE EVENT DATE: 20200113
